FAERS Safety Report 16832769 (Version 3)
Quarter: 2020Q2

REPORT INFORMATION
  Report Type: Report from Study
  Country: CN (occurrence: CN)
  Receive Date: 20190920
  Receipt Date: 20200601
  Transmission Date: 20200713
  Serious: Yes (Hospitalization)
  Sender: FDA-Public Use
  Company Number: CN-ROCHE-2405103

PATIENT
  Age: 70 Year
  Sex: Male
  Weight: 63.5 kg

DRUGS (16)
  1. GLIMEPIRIDE. [Concomitant]
     Active Substance: GLIMEPIRIDE
     Route: 065
     Dates: start: 20181222
  2. IMIPENEM AND CILASTATIN SODIUM [Concomitant]
     Active Substance: CILASTATIN SODIUM\IMIPENEM
     Route: 065
     Dates: end: 2019
  3. COMPOUND EOSINOPHIL LACTOBACILLUS [BACILLUS SUBTILIS;ENTEROCOCCUS FAEC [Concomitant]
     Indication: DECREASED APPETITE
     Route: 065
     Dates: start: 20190818
  4. DOCETAXEL. [Suspect]
     Active Substance: DOCETAXEL
     Indication: NON-SMALL CELL LUNG CANCER
     Dosage: RECENT DOSE (120 MG) ON 04/SEP/2018, 25/SEP/2018 AND 16/OCT/2018
     Route: 042
     Dates: start: 20180813
  5. DOCETAXEL. [Suspect]
     Active Substance: DOCETAXEL
     Route: 042
     Dates: start: 20180904
  6. MEDIUM AND LONG CHAIN FAT EMULSION INJECTION (C6-24) [Concomitant]
     Indication: CACHEXIA
     Route: 065
     Dates: start: 2019, end: 2019
  7. CISPLATIN. [Suspect]
     Active Substance: CISPLATIN
     Route: 042
     Dates: start: 20180925
  8. CISPLATIN. [Suspect]
     Active Substance: CISPLATIN
     Route: 042
     Dates: start: 20181016
  9. CISPLATIN. [Suspect]
     Active Substance: CISPLATIN
     Route: 042
     Dates: start: 20180904
  10. JANUVIA [Concomitant]
     Active Substance: SITAGLIPTIN PHOSPHATE
     Indication: DIABETES MELLITUS
     Route: 065
     Dates: start: 20181222
  11. CISPLATIN. [Suspect]
     Active Substance: CISPLATIN
     Indication: NON-SMALL CELL LUNG CANCER
     Dosage: RECENT DOSE (120 MG) ON 04/SEP/2018, 25/SEP/2018 AND 16/OCT/2018
     Route: 042
     Dates: start: 20180813
  12. DOCETAXEL. [Suspect]
     Active Substance: DOCETAXEL
     Route: 042
     Dates: start: 20181016
  13. DESLORATADINE CITRATE DISODIUM [Concomitant]
     Active Substance: DESLORATADINE
     Indication: RASH
     Route: 065
     Dates: start: 20190306
  14. ATEZOLIZUMAB. [Suspect]
     Active Substance: ATEZOLIZUMAB
     Indication: NON-SMALL CELL LUNG CANCER
     Dosage: ON 02/AUG/2019, HE RECEIVED MOST RECENT DOSE OF ATEZOLIZUMAB 1200MG
     Route: 042
     Dates: start: 20181206
  15. DOCETAXEL. [Suspect]
     Active Substance: DOCETAXEL
     Route: 042
     Dates: start: 20180925
  16. PANTOPRAZOLE SODIUM. [Concomitant]
     Active Substance: PANTOPRAZOLE SODIUM
     Indication: DECREASED APPETITE
     Route: 065
     Dates: start: 20190818

REACTIONS (1)
  - Dyspepsia [Recovered/Resolved with Sequelae]

NARRATIVE: CASE EVENT DATE: 20190802
